FAERS Safety Report 7409166-2 (Version None)
Quarter: 2011Q2

REPORT INFORMATION
  Report Type: 
  Country: None (occurrence: None)
  Receive Date: 20110412
  Receipt Date: 20110406
  Transmission Date: 20111010
  Serious: Yes (Other)
  Sender: FDA-Public Use
  Company Number: ES-PFIZER INC-2010107991

PATIENT
  Age: 40 Year
  Sex: Male

DRUGS (6)
  1. CLEXANE [Concomitant]
     Dosage: 20 MG/DAY
     Route: 058
     Dates: start: 20100513, end: 20100514
  2. TYGACIL [Suspect]
     Dosage: 50 MG, 2X/DAY
     Route: 042
     Dates: start: 20100510, end: 20100601
  3. VFEND [Suspect]
     Dosage: 300 MG, 2X/DAY
     Route: 042
     Dates: start: 20100522, end: 20100531
  4. SANDIMMUNE [Concomitant]
     Dosage: FROM 125 TO 220 MG, 2X/DAY
     Route: 042
     Dates: start: 20100502
  5. VFEND [Suspect]
     Indication: FUNGAL INFECTION
     Dosage: 440 MG, 2X/DAY
     Route: 042
     Dates: start: 20100521, end: 20100521
  6. PANTOPRAZOLE SODIUM [Concomitant]
     Dosage: 40 MG/DAY
     Route: 042
     Dates: start: 20100513

REACTIONS (3)
  - CONDITION AGGRAVATED [None]
  - HYPOGLYCAEMIA [None]
  - COAGULOPATHY [None]
